FAERS Safety Report 18591297 (Version 1)
Quarter: 2020Q4

REPORT INFORMATION
  Report Type: Report from Study
  Country: US (occurrence: US)
  Receive Date: 20201208
  Receipt Date: 20201208
  Transmission Date: 20210114
  Serious: Yes (Hospitalization)
  Sender: FDA-Public Use
  Company Number: US-JNJFOC-20201102434

PATIENT
  Age: 58 Year
  Sex: Female

DRUGS (1)
  1. MACITENTAN [Suspect]
     Active Substance: MACITENTAN
     Indication: PULMONARY ARTERIAL HYPERTENSION
     Route: 048
     Dates: start: 20200520

REACTIONS (4)
  - Pneumonia [Unknown]
  - Adverse drug reaction [Unknown]
  - Peripheral swelling [Unknown]
  - Nasal congestion [Unknown]

NARRATIVE: CASE EVENT DATE: 20201114
